FAERS Safety Report 4284487-3 (Version None)
Quarter: 2004Q1

REPORT INFORMATION
  Report Type: 
  Country: None (occurrence: None)
  Receive Date: 20040130
  Receipt Date: 20040120
  Transmission Date: 20041129
  Serious: Yes (Death, Other)
  Sender: FDA-Public Use
  Company Number: 2004003777

PATIENT
  Age: 17 Year
  Sex: Female

DRUGS (4)
  1. ZYRTEC [Suspect]
     Indication: ILL-DEFINED DISORDER
  2. CAFFEINE (CAFFEINE) [Suspect]
     Indication: ILL-DEFINED DISORDER
     Dosage: 6400MG , ORAL
     Route: 048
     Dates: start: 20031029
  3. PAROXETINE HCL [Suspect]
     Indication: ILL-DEFINED DISORDER
     Dosage: ORAL
     Route: 048
  4. FLUTICASONE PROPIONATE [Suspect]
     Indication: ILL-DEFINED DISORDER
     Dosage: INHALATION
     Route: 055

REACTIONS (10)
  - CARDIO-RESPIRATORY ARREST [None]
  - COMA [None]
  - CONVULSION [None]
  - CRYING [None]
  - INTENTIONAL MISUSE [None]
  - MULTIPLE DRUG OVERDOSE [None]
  - PUPIL FIXED [None]
  - VENTRICULAR FIBRILLATION [None]
  - VENTRICULAR TACHYCARDIA [None]
  - VOMITING [None]
